FAERS Safety Report 12202441 (Version 1)
Quarter: 2016Q1

REPORT INFORMATION
  Report Type: Spontaneous
  Country: GB (occurrence: GB)
  Receive Date: 20160322
  Receipt Date: 20160322
  Transmission Date: 20160526
  Serious: Yes (Other)
  Sender: FDA-Public Use
  Company Number: GB-GILEAD-2016-0204749

PATIENT
  Age: 63 Year
  Sex: Female

DRUGS (3)
  1. DOSULEPIN HYDROCHLORIDE [Concomitant]
     Active Substance: DOTHIEPIN HYDROCHLORIDE
  2. IBUPROFEN. [Concomitant]
     Active Substance: IBUPROFEN
  3. HARVONI [Suspect]
     Active Substance: LEDIPASVIR\SOFOSBUVIR
     Indication: HEPATITIS C
     Dosage: UNK
     Route: 065
     Dates: start: 201506, end: 201508

REACTIONS (6)
  - Dermatitis [Unknown]
  - Lymphadenopathy [Unknown]
  - Asthenia [Unknown]
  - Lymphangitis [Unknown]
  - Rash macular [Unknown]
  - Skin ulcer [Unknown]
